FAERS Safety Report 8772370 (Version 1)
Quarter: 2012Q4

REPORT INFORMATION
  Report Type: 
  Country: AR (occurrence: AR)
  Receive Date: 20120905
  Receipt Date: 20120905
  Transmission Date: 20130627
  Serious: Yes (Other)
  Sender: FDA-Public Use
  Company Number: PHHY2012AR076638

PATIENT
  Sex: Male

DRUGS (1)
  1. DIOVAN [Suspect]
     Indication: BLOOD PRESSURE
     Dosage: 80 mg, daily

REACTIONS (3)
  - Dementia Alzheimer^s type [Recovered/Resolved]
  - Amnesia [Recovered/Resolved]
  - Abasia [Recovered/Resolved]
